FAERS Safety Report 15556686 (Version 1)
Quarter: 2018Q4

REPORT INFORMATION
  Report Type: Report from Study
  Country: IT (occurrence: IT)
  Receive Date: 20181026
  Receipt Date: 20181026
  Transmission Date: 20190205
  Serious: Yes (Hospitalization)
  Sender: FDA-Public Use
  Company Number: IT-TEVA-2018-IT-968777

PATIENT
  Age: 70 Year
  Sex: Female

DRUGS (5)
  1. EUTIROX 50 MICROGRAMMI COMPRESSE [Concomitant]
     Indication: HYPOTHYROIDISM
     Route: 048
  2. CARDIOASPIRIN 100 MG COMPRESSE GASTRORESISTENTI [Concomitant]
     Active Substance: ASPIRIN
     Indication: THROMBOSIS PROPHYLAXIS
     Route: 048
  3. FLECAINIDE ACETATE. [Suspect]
     Active Substance: FLECAINIDE ACETATE
     Indication: ARRHYTHMIA
     Dosage: 2 DOSAGE FORMS DAILY;
     Route: 048
  4. SINVACOR 10 MG COMPRESSE RIVESTITE CON FILM [Concomitant]
     Active Substance: SIMVASTATIN
     Route: 048
  5. BISOPROLOL FUMARATE. [Suspect]
     Active Substance: BISOPROLOL FUMARATE
     Indication: CARDIAC DISORDER
     Dosage: 1 DOSAGE FORMS DAILY;
     Route: 048

REACTIONS (1)
  - Sinoatrial block [Unknown]

NARRATIVE: CASE EVENT DATE: 20180926
